FAERS Safety Report 5399654-5 (Version None)
Quarter: 2007Q3

REPORT INFORMATION
  Report Type: 
  Country: None (occurrence: None)
  Receive Date: 20070727
  Receipt Date: 20070723
  Transmission Date: 20080115
  Serious: Yes (Other)
  Sender: FDA-Public Use
  Company Number: US-ASTRAZENECA-2007UW17126

PATIENT
  Sex: Female

DRUGS (10)
  1. ELAVIL [Suspect]
     Indication: NEURALGIA
  2. LIPITOR [Suspect]
     Indication: BLOOD CHOLESTEROL INCREASED
     Route: 048
  3. CELEBREX [Suspect]
     Indication: INFLAMMATION
     Dates: start: 19980101, end: 20010101
  4. IBUPROFEN [Suspect]
     Indication: INFLAMMATION
     Route: 048
     Dates: start: 20050101
  5. LYRICA [Suspect]
     Indication: NEURALGIA
     Route: 048
     Dates: start: 20051208
  6. VIOXX [Suspect]
     Indication: INFLAMMATION
  7. CHLOR-TRIMETON [Concomitant]
  8. ADVIL LIQUI-GELS [Concomitant]
  9. ZANAFLEX [Concomitant]
     Dosage: 1/2 PILL
  10. HORMONE REPLACEMENT THERAPY [Concomitant]
     Dates: end: 20040101

REACTIONS (16)
  - BACK DISORDER [None]
  - BACK INJURY [None]
  - BODY HEIGHT DECREASED [None]
  - CARPAL TUNNEL SYNDROME [None]
  - DRUG HYPERSENSITIVITY [None]
  - FEELING ABNORMAL [None]
  - INFLAMMATION [None]
  - MENISCUS LESION [None]
  - MENSTRUATION IRREGULAR [None]
  - METRORRHAGIA [None]
  - MULTIPLE ALLERGIES [None]
  - NEURALGIA [None]
  - RASH [None]
  - SOMNOLENCE [None]
  - TACHYCARDIA [None]
  - WEIGHT INCREASED [None]
